FAERS Safety Report 4437332-7 (Version None)
Quarter: 2004Q3

REPORT INFORMATION
  Report Type: 
  Country: None (occurrence: None)
  Receive Date: 20040726
  Receipt Date: 20040330
  Transmission Date: 20050211
  Serious: No
  Sender: FDA-Public Use
  Company Number: USA040363623

PATIENT
  Age: 76 Year
  Sex: Female

DRUGS (3)
  1. FORTEO [Suspect]
     Indication: OSTEOPOROSIS
     Dates: start: 20031001
  2. METOPROLOL [Concomitant]
  3. CARDIZEM [Concomitant]

REACTIONS (2)
  - HOT FLUSH [None]
  - WEIGHT INCREASED [None]
